FAERS Safety Report 24686268 (Version 1)
Quarter: 2024Q4

REPORT INFORMATION
  Report Type: Report from Study
  Country: PH (occurrence: PH)
  Receive Date: 20241202
  Receipt Date: 20241202
  Transmission Date: 20250115
  Serious: Yes (Death, Other)
  Sender: OTSUKA
  Company Number: PH-OTSUKA-2024_032151

PATIENT
  Sex: Female

DRUGS (1)
  1. TOLVAPTAN [Suspect]
     Active Substance: TOLVAPTAN
     Indication: Congenital cystic kidney disease
     Dosage: 15 MG, QD
     Route: 048

REACTIONS (2)
  - Congenital cystic kidney disease [Fatal]
  - Product use in unapproved indication [Unknown]
